FAERS Safety Report 18766980 (Version 3)
Quarter: 2021Q1

REPORT INFORMATION
  Report Type: Spontaneous
  Country: FR (occurrence: FR)
  Receive Date: 20210121
  Receipt Date: 20210217
  Transmission Date: 20210419
  Serious: Yes (Death, Life-Threatening, Other)
  Sender: FDA-Public Use
  Company Number: FR-STRIDES ARCOLAB LIMITED-2021SP000905

PATIENT
  Age: 58 Year
  Sex: Male
  Weight: 56 kg

DRUGS (8)
  1. GABAPENTIN. [Suspect]
     Active Substance: GABAPENTIN
     Indication: DEPRESSION
     Dosage: UNK, DOSAGE WAS INCREASED
     Route: 065
     Dates: start: 2018, end: 2019
  2. PARACETAMOL [Concomitant]
     Active Substance: ACETAMINOPHEN
     Indication: PRODUCT USED FOR UNKNOWN INDICATION
     Dosage: 1000 MILLIGRAM, AS NECESSARY
     Route: 065
  3. BROMAZEPAM [Concomitant]
     Active Substance: BROMAZEPAM
     Indication: PRODUCT USED FOR UNKNOWN INDICATION
     Dosage: 1 DOSAGE FORM PER DAY ,IN THE EVENING
     Route: 065
  4. GABAPENTIN. [Suspect]
     Active Substance: GABAPENTIN
     Dosage: 1 DOSAGE FORM, EVERY 8 HRS ,EACH MORNING, NOON AND EVENING (TABLET)(GABAPENTIN 800MG)
     Route: 065
  5. GABAPENTIN. [Suspect]
     Active Substance: GABAPENTIN
     Dosage: UNK, DOSAGE WAS INCREASED
     Route: 065
     Dates: start: 2019
  6. GABAPENTIN. [Suspect]
     Active Substance: GABAPENTIN
     Dosage: 1 DOSAGE FORM, EVERY 8 HRS ,EACH MORNING, NOON AND EVENING (CAPSULE)(GABAPENTIN 100MG)
     Route: 065
  7. CODEINE [Concomitant]
     Active Substance: CODEINE
     Indication: PRODUCT USED FOR UNKNOWN INDICATION
     Dosage: UNK
     Route: 065
  8. GABAPENTIN. [Suspect]
     Active Substance: GABAPENTIN
     Indication: NEURALGIA
     Dosage: OVERDOSE, GABAPENTIN DOSAGE WAS INCREASED IN 2018 AND IN MID?2019
     Route: 065
     Dates: start: 2017, end: 2018

REACTIONS (4)
  - Overdose [Fatal]
  - Off label use [Unknown]
  - Toxicity to various agents [Fatal]
  - Intentional product misuse [Fatal]
